FAERS Safety Report 7576204-6 (Version None)
Quarter: 2011Q2

REPORT INFORMATION
  Report Type: 
  Country: None (occurrence: None)
  Receive Date: 20110628
  Receipt Date: 20110117
  Transmission Date: 20111010
  Serious: Yes (Hospitalization, Other)
  Sender: FDA-Public Use
  Company Number: US-BAYER-201041896NA

PATIENT
  Age: 25 Year
  Sex: Female
  Weight: 73 kg

DRUGS (7)
  1. LEXAPRO [Concomitant]
     Dosage: UNK
     Dates: start: 20090601
  2. VISTARIL [Concomitant]
     Dosage: UNK
     Dates: start: 20090601
  3. YASMIN [Suspect]
     Indication: PRODUCT USED FOR UNKNOWN INDICATION
     Route: 048
     Dates: start: 20040301, end: 20080715
  4. NEXIUM [Concomitant]
     Dosage: UNK
     Dates: start: 20090601, end: 20090901
  5. YAZ [Suspect]
  6. DROSPIRENONE AND ETHINYL ESTRADIOL [Suspect]
     Indication: PRODUCT USED FOR UNKNOWN INDICATION
     Route: 048
     Dates: start: 20080701
  7. ANTIBIOTICS [Concomitant]

REACTIONS (6)
  - CHOLECYSTITIS [None]
  - ABDOMINAL PAIN [None]
  - GASTROOESOPHAGEAL REFLUX DISEASE [None]
  - GALLBLADDER DISORDER [None]
  - GALLBLADDER POLYP [None]
  - DYSPEPSIA [None]
